FAERS Safety Report 8432770-X (Version None)
Quarter: 2012Q2

REPORT INFORMATION
  Report Type: 
  Country: None (occurrence: None)
  Receive Date: 20120613
  Receipt Date: 20120518
  Transmission Date: 20120825
  Serious: No
  Sender: FDA-Public Use
  Company Number: US-PFIZER INC-2012136102

PATIENT
  Sex: Male

DRUGS (15)
  1. DIFLUCAN [Suspect]
     Indication: PYREXIA
     Dosage: 100 MG, 1X/DAY
     Route: 048
     Dates: start: 20110414, end: 20110101
  2. ASPIRIN [Concomitant]
     Indication: PROPHYLAXIS
     Dosage: 81 MG, UNK
     Route: 048
     Dates: start: 20110131
  3. ACYCLOVIR [Concomitant]
     Indication: NEUROPATHY PERIPHERAL
     Dosage: 400 MG, UNK
     Route: 048
     Dates: start: 20110131
  4. DIFLUCAN [Suspect]
     Indication: CANDIDIASIS
     Dosage: 100 MG, 1X/DAY
     Route: 048
     Dates: start: 20110214, end: 20110224
  5. VITAMIN D [Concomitant]
     Indication: SUPPLEMENTATION THERAPY
     Dosage: UNK
     Route: 048
     Dates: start: 20110303
  6. ZOMETA [Concomitant]
     Indication: PROPHYLAXIS
     Dosage: 4 MG, MONTHLY
     Route: 042
     Dates: start: 20110131
  7. CIPROFLOXACIN [Suspect]
     Indication: PYREXIA
     Dosage: 500 MG, 2X/DAY
     Route: 048
     Dates: start: 20110214, end: 20110224
  8. ALPHA LIPOIC ACID [Concomitant]
     Indication: NEUROPATHY PERIPHERAL
     Dosage: 1200 MG, UNK
     Route: 048
     Dates: start: 20110131
  9. VELCADE [Concomitant]
     Indication: MULTIPLE MYELOMA
     Dosage: UNK
     Route: 065
     Dates: start: 20110131, end: 20110213
  10. REVLIMID [Concomitant]
     Indication: MULTIPLE MYELOMA
     Dosage: 10 MG, UNK
     Route: 048
     Dates: start: 20110131, end: 20110213
  11. FLECAINIDE ACETATE [Concomitant]
     Indication: ATRIAL FIBRILLATION
     Dosage: 300 MG, 1X/DAY
     Route: 048
     Dates: start: 20110216, end: 20110216
  12. NORVASC [Concomitant]
     Indication: HYPERTENSION
     Dosage: 5 MG, 1X/DAY
     Route: 048
     Dates: start: 20110216
  13. PROCRIT [Concomitant]
     Indication: ATRIAL FIBRILLATION
     Dosage: UNK
     Route: 058
     Dates: start: 20110203
  14. DECADRON [Concomitant]
     Indication: MULTIPLE MYELOMA
     Dosage: UNK
     Route: 065
     Dates: start: 20110131, end: 20110210
  15. DOXORUBICIN HYDROCHLORIDE [Concomitant]
     Indication: MULTIPLE MYELOMA
     Dosage: 8 MG, UNK
     Route: 042
     Dates: start: 20110131, end: 20110210

REACTIONS (1)
  - RASH GENERALISED [None]
